FAERS Safety Report 13406652 (Version 4)
Quarter: 2017Q4

REPORT INFORMATION
  Report Type: Spontaneous
  Country: JP (occurrence: JP)
  Receive Date: 20170405
  Receipt Date: 20171027
  Transmission Date: 20180320
  Serious: Yes (Death, Hospitalization, Other)
  Sender: FDA-Public Use
  Company Number: JP-JNJFOC-20170400173

PATIENT
  Age: 17 Year
  Sex: Female
  Weight: 47 kg

DRUGS (28)
  1. BESOFTEN [Concomitant]
     Active Substance: PENTOSAN POLYSULFATE SODIUM
     Route: 065
  2. SOLDEM 3A [Concomitant]
     Active Substance: CARBOHYDRATES\POTASSIUM CHLORIDE\SODIUM CHLORIDE\SODIUM LACTATE
     Route: 065
     Dates: start: 20161110, end: 20170119
  3. HYALEIN [Concomitant]
     Active Substance: HYALURONATE SODIUM
     Route: 065
     Dates: start: 20170109
  4. HEPARIN [Concomitant]
     Active Substance: HEPARIN SODIUM
     Route: 065
     Dates: start: 20161113, end: 20170119
  5. MIYA-BM [Concomitant]
     Active Substance: CLOSTRIDIUM BUTYRICUM SPORES STRAIN M-55
     Route: 048
     Dates: start: 20161115, end: 20161223
  6. MAGNESIUM OXIDE. [Concomitant]
     Active Substance: MAGNESIUM OXIDE
     Route: 048
     Dates: start: 20161216, end: 20161230
  7. SOLITA-T NO.2 [Concomitant]
     Route: 065
     Dates: start: 20161212, end: 20170114
  8. YONDELIS [Suspect]
     Active Substance: TRABECTEDIN
     Indication: ALVEOLAR RHABDOMYOSARCOMA
     Dosage: CYCLE 1
     Route: 042
     Dates: start: 20161220, end: 20161220
  9. ALOSITOL [Concomitant]
     Active Substance: ALLOPURINOL
     Route: 048
     Dates: start: 20161227, end: 20161230
  10. SOLDEM 1 [Concomitant]
     Active Substance: DEXTROSE\SODIUM CHLORIDE\SODIUM LACTATE
     Route: 065
     Dates: start: 20161226, end: 20170104
  11. OXINORM (OXYCODONE HYDROCHLORIDE) [Concomitant]
     Active Substance: OXYCODONE HYDROCHLORIDE
     Route: 048
  12. OXYCONTIN [Concomitant]
     Active Substance: OXYCODONE HYDROCHLORIDE
     Route: 048
     Dates: start: 20161222, end: 20161222
  13. URONASE [Concomitant]
     Active Substance: UROKINASE
     Route: 065
     Dates: start: 20170106, end: 20170106
  14. WHITE PETROLATUM [Concomitant]
     Active Substance: PETROLATUM
     Route: 065
     Dates: start: 20170105
  15. DEXART [Concomitant]
     Active Substance: DEXAMETHASONE SODIUM PHOSPHATE
     Route: 065
  16. THYRADIN S [Concomitant]
     Active Substance: LEVOTHYROXINE SODIUM
     Route: 048
     Dates: start: 20161110, end: 20170120
  17. FLUCONAZOLE. [Concomitant]
     Active Substance: FLUCONAZOLE
     Route: 048
     Dates: start: 20161115, end: 20161230
  18. ELEJECT [Concomitant]
     Route: 065
     Dates: start: 20160105, end: 20170119
  19. ISOTONIC SODIUM CHLORIDE SOLUTION [Concomitant]
     Active Substance: SODIUM CHLORIDE
     Route: 065
     Dates: start: 20170114, end: 20170119
  20. HEPARIN NA LOCK [Concomitant]
     Active Substance: HEPARIN SODIUM
     Route: 065
     Dates: start: 20170109, end: 20170109
  21. TERPERAN [Concomitant]
     Active Substance: METOCLOPRAMIDE HYDROCHLORIDE
     Route: 065
  22. SODIUM CHLORIDE. [Concomitant]
     Active Substance: SODIUM CHLORIDE
     Route: 065
     Dates: start: 20161226, end: 20170119
  23. ALPRAZOLAM. [Concomitant]
     Active Substance: ALPRAZOLAM
     Route: 048
     Dates: start: 20161227, end: 20161231
  24. PHYSIO 35 [Concomitant]
     Active Substance: ELECTROLYTES NOS
     Route: 065
     Dates: start: 20161221, end: 20170119
  25. SAXIZON [Concomitant]
     Active Substance: HYDROCORTISONE SODIUM SUCCINATE
     Route: 065
     Dates: start: 20161225, end: 20170117
  26. DAIPHEN [Concomitant]
     Active Substance: SULFAMETHOXAZOLE\TRIMETHOPRIM
     Route: 048
     Dates: start: 20161113, end: 20161230
  27. FIRSTCIN [Concomitant]
     Active Substance: CEFOZOPRAN HYDROCHLORIDE
     Route: 065
     Dates: start: 20170109, end: 20170116
  28. NOVAMIN (PROCHLORPERAZINE MALEATE) [Concomitant]
     Active Substance: PROCHLORPERAZINE MALEATE
     Route: 048
     Dates: start: 20161110, end: 20170120

REACTIONS (12)
  - Blood bilirubin increased [Fatal]
  - White blood cell count decreased [Recovered/Resolved]
  - Muscular weakness [Unknown]
  - Alanine aminotransferase increased [Fatal]
  - Cranial nerve paralysis [Unknown]
  - Blood creatine phosphokinase increased [Fatal]
  - Platelet count decreased [Not Recovered/Not Resolved]
  - Blood potassium increased [Recovered/Resolved]
  - Neuropathy peripheral [Unknown]
  - Alveolar rhabdomyosarcoma [Fatal]
  - Blood creatinine increased [Recovered/Resolved]
  - Aspartate aminotransferase increased [Fatal]

NARRATIVE: CASE EVENT DATE: 20161223
